FAERS Safety Report 13119025 (Version 1)
Quarter: 2017Q1

REPORT INFORMATION
  Report Type: Other
  Country: US (occurrence: US)
  Receive Date: 20170116
  Receipt Date: 20170116
  Transmission Date: 20170428
  Serious: Yes (Death)
  Sender: FDA-Public Use
  Company Number: US-LEHIGH_VALLEY-USA-POI0580201700002

PATIENT
  Age: 51 Year
  Sex: Female

DRUGS (14)
  1. AMITRIPTYLINE [Suspect]
     Active Substance: AMITRIPTYLINE
     Dates: end: 2015
  2. QUETIAPINE. [Suspect]
     Active Substance: QUETIAPINE
     Dates: end: 2015
  3. SUVOREXANT. [Suspect]
     Active Substance: SUVOREXANT
     Dates: end: 2015
  4. TRAZODONE [Suspect]
     Active Substance: TRAZODONE HYDROCHLORIDE
     Dates: end: 2015
  5. POTASSIUM CHLORIDE ORAL SOLUTION [Suspect]
     Active Substance: POTASSIUM CHLORIDE
     Dates: end: 2015
  6. FUROSEMIDE. [Suspect]
     Active Substance: FUROSEMIDE
     Dates: end: 2015
  7. BENZODIAZEPINE [Suspect]
     Active Substance: BENZODIAZEPINE
     Dates: end: 2015
  8. DICYCLOMINE [Suspect]
     Active Substance: DICYCLOMINE HYDROCHLORIDE
     Dates: end: 2015
  9. METOPROLOL. [Suspect]
     Active Substance: METOPROLOL
     Dates: end: 2015
  10. ALPHA BLOCKER [Suspect]
     Active Substance: UNSPECIFIED INGREDIENT
     Dates: end: 2015
  11. CARISOPRODOL. [Suspect]
     Active Substance: CARISOPRODOL
     Dates: end: 2015
  12. LINACLOTIDE [Suspect]
     Active Substance: LINACLOTIDE
     Dates: end: 2015
  13. GABAPENTIN. [Suspect]
     Active Substance: GABAPENTIN
     Dates: end: 2015
  14. OMEPRAZOLE. [Suspect]
     Active Substance: OMEPRAZOLE
     Dates: end: 2015

REACTIONS (1)
  - Completed suicide [Fatal]

NARRATIVE: CASE EVENT DATE: 2015
